FAERS Safety Report 7088925-2 (Version None)
Quarter: 2010Q4

REPORT INFORMATION
  Report Type: 
  Country: None (occurrence: None)
  Receive Date: 20101108
  Receipt Date: 20101027
  Transmission Date: 20110411
  Serious: Yes (Other)
  Sender: FDA-Public Use
  Company Number: PHHY2010US73572

PATIENT

DRUGS (1)
  1. RECLAST [Suspect]
     Dosage: 5MG
     Route: 042

REACTIONS (2)
  - INCORRECT DOSE ADMINISTERED [None]
  - VEIN DISORDER [None]
